FAERS Safety Report 7350397-8 (Version None)
Quarter: 2011Q1

REPORT INFORMATION
  Report Type: 
  Country: None (occurrence: None)
  Receive Date: 20110314
  Receipt Date: 20110303
  Transmission Date: 20110831
  Serious: Yes (Other)
  Sender: FDA-Public Use
  Company Number: FR-JNJFOC-20110302637

PATIENT
  Age: 19 Year
  Sex: Female

DRUGS (4)
  1. REMICADE [Suspect]
     Indication: CROHN'S DISEASE
     Route: 042
  2. REMICADE [Suspect]
     Route: 042
  3. REMICADE [Suspect]
     Route: 042
  4. REMICADE [Suspect]
     Route: 042

REACTIONS (11)
  - CHEST DISCOMFORT [None]
  - EYELID OEDEMA [None]
  - ARTHRALGIA [None]
  - INFUSION RELATED REACTION [None]
  - ANAPHYLACTIC REACTION [None]
  - PRURITUS [None]
  - RASH PAPULAR [None]
  - SKIN REACTION [None]
  - BLOOD PRESSURE INCREASED [None]
  - HOT FLUSH [None]
  - MALAISE [None]
